FAERS Safety Report 9682719 (Version 1)
Quarter: 2013Q4

REPORT INFORMATION
  Report Type: Spontaneous
  Country: IT (occurrence: IT)
  Receive Date: 20131025
  Receipt Date: 20131025
  Transmission Date: 20140711
  Serious: Yes (Other)
  Sender: FDA-Public Use
  Company Number: IT-DRREDDYS-USA/ITL/13/0035158

PATIENT
  Age: 42 Year
  Sex: Female

DRUGS (2)
  1. IRBESARTAN [Suspect]
     Indication: HYPERTENSION
     Route: 065
  2. ETHINYL ESTRADIOL\GESTODENE [Suspect]
     Indication: CONTRACEPTION
     Route: 048

REACTIONS (1)
  - Autoimmune hepatitis [Unknown]
